FAERS Safety Report 6083679-0 (Version None)
Quarter: 2009Q1

REPORT INFORMATION
  Report Type: 
  Country: None (occurrence: None)
  Receive Date: 20090217
  Receipt Date: 20090130
  Transmission Date: 20090719
  Serious: Yes (Other)
  Sender: FDA-Public Use
  Company Number: 8037268

PATIENT
  Age: 28 Year
  Sex: Female

DRUGS (10)
  1. KEPPRA [Suspect]
     Indication: GRAND MAL CONVULSION
     Dosage: 1000 MG
     Dates: start: 20080908, end: 20080913
  2. KEPPRA [Suspect]
     Indication: GRAND MAL CONVULSION
     Dosage: 2000 MG
     Dates: start: 20080913, end: 20080929
  3. KEPPRA [Suspect]
     Indication: GRAND MAL CONVULSION
     Dosage: 3000 MG
     Dates: start: 20080929, end: 20081117
  4. KEPPRA [Suspect]
     Indication: GRAND MAL CONVULSION
     Dosage: 3500 MG
     Dates: start: 20081117
  5. MARIJUANA [Suspect]
  6. NICOTINE [Suspect]
  7. NICODERM [Concomitant]
  8. FOLIC ACID [Concomitant]
  9. PRENATAL VITAMINS /01549301/ [Concomitant]
  10. ZONEGRAN [Concomitant]

REACTIONS (4)
  - DRUG EXPOSURE DURING PREGNANCY [None]
  - INDUCED LABOUR [None]
  - MATERNAL USE OF ILLICIT DRUGS [None]
  - NAUSEA [None]
